FAERS Safety Report 17307885 (Version 1)
Quarter: 2020Q1

REPORT INFORMATION
  Report Type: Spontaneous
  Country: US (occurrence: US)
  Receive Date: 20200122
  Receipt Date: 20200122
  Transmission Date: 20200409
  Serious: Yes (Hospitalization, Other)
  Sender: FDA-Public Use
  Company Number: None

PATIENT
  Age: 60 Year
  Sex: Female
  Weight: 68.4 kg

DRUGS (1)
  1. LEFLUNOMIDE TABS, 10 MG. [Suspect]
     Active Substance: LEFLUNOMIDE
     Indication: RHEUMATOID ARTHRITIS
     Dosage: ?          QUANTITY:1 TABLET(S);?
     Route: 048
     Dates: start: 20190415, end: 20190910

REACTIONS (3)
  - Pancreatitis [None]
  - Emotional distress [None]
  - Vascular pseudoaneurysm [None]

NARRATIVE: CASE EVENT DATE: 20190718
